FAERS Safety Report 5569987-8 (Version None)
Quarter: 2007Q4

REPORT INFORMATION
  Report Type: 
  Country: None (occurrence: None)
  Receive Date: 20071218
  Receipt Date: 20071126
  Transmission Date: 20080405
  Serious: Yes (Hospitalization)
  Sender: FDA-Public Use
  Company Number: WAES 07001FRA00093

PATIENT
  Age: 42 Year
  Sex: Male

DRUGS (4)
  1. INDOCIN [Suspect]
     Indication: ANKYLOSING SPONDYLITIS
     Dates: end: 20070923
  2. INJ INFLIXIMAB [Suspect]
     Indication: ANKYLOSING SPONDYLITIS
     Dates: start: 20070926, end: 20070926
  3. ACETAMINOPHEN [Concomitant]
  4. DEXCHLORPEHNIRAMINE MALEATE [Concomitant]

REACTIONS (2)
  - PANCREATITIS [None]
  - RASH [None]
